FAERS Safety Report 18699049 (Version 1)
Quarter: 2021Q1

REPORT INFORMATION
  Report Type: Report from Study
  Country: US (occurrence: US)
  Receive Date: 20210104
  Receipt Date: 20210104
  Transmission Date: 20210419
  Serious: Yes (Death, Hospitalization, Other)
  Sender: FDA-Public Use
  Company Number: US-BRISTOL-MYERS SQUIBB COMPANY-BMS-2020-100929

PATIENT
  Age: 80 Year
  Sex: Female
  Weight: 65.3 kg

DRUGS (3)
  1. NIVOLUMAB [Suspect]
     Active Substance: NIVOLUMAB
     Indication: MALIGNANT MELANOMA
     Dosage: 183 MILLIGRAM, Q2WK
     Route: 042
     Dates: start: 20200923, end: 20201125
  2. IPILIMUMAB [Suspect]
     Active Substance: IPILIMUMAB
     Indication: MALIGNANT MELANOMA
     Dosage: 61 MILLIGRAM
     Route: 065
     Dates: start: 20200923, end: 20201125
  3. TOCILIZUMAB. [Suspect]
     Active Substance: TOCILIZUMAB
     Indication: MALIGNANT MELANOMA
     Dosage: 244 MILLIGRAM, Q6WK
     Route: 042
     Dates: start: 20200923, end: 20201125

REACTIONS (2)
  - SARS-CoV-2 sepsis [Fatal]
  - Lacunar stroke [Recovered/Resolved with Sequelae]

NARRATIVE: CASE EVENT DATE: 20201125
